FAERS Safety Report 4899089-5 (Version None)
Quarter: 2006Q1

REPORT INFORMATION
  Report Type: 
  Country: None (occurrence: None)
  Receive Date: 20060202
  Receipt Date: 20051223
  Transmission Date: 20060701
  Serious: Yes (Death)
  Sender: FDA-Public Use
  Company Number: PL-BRISTOL-MYERS SQUIBB COMPANY-13228812

PATIENT
  Age: 51 Year
  Sex: Female
  Weight: 51 kg

DRUGS (6)
  1. CYCLOPHOSPHAMIDE [Suspect]
     Indication: BREAST CANCER
     Route: 042
     Dates: start: 20051123, end: 20051123
  2. PEMETREXED DISODIUM [Suspect]
     Indication: BREAST CANCER
     Route: 042
     Dates: start: 20051123
  3. FOLIC ACID [Concomitant]
     Indication: PROPHYLAXIS
     Dates: start: 20051110, end: 20051130
  4. VITAMIN B-12 [Concomitant]
     Indication: PROPHYLAXIS
     Dates: start: 20051110, end: 20051110
  5. MORPHINE [Concomitant]
     Indication: HEPATIC PAIN
     Dates: start: 20051115, end: 20051130
  6. ZOFRAN [Concomitant]
     Route: 042

REACTIONS (1)
  - FATIGUE [None]
